FAERS Safety Report 4667271-8 (Version None)
Quarter: 2005Q2

REPORT INFORMATION
  Report Type: 
  Country: None (occurrence: None)
  Receive Date: 20050520
  Receipt Date: 20040907
  Transmission Date: 20051028
  Serious: Yes (Other)
  Sender: FDA-Public Use
  Company Number: PHEH2004US09609

PATIENT
  Age: 60 Year
  Sex: Male

DRUGS (10)
  1. LIPITOR [Concomitant]
     Indication: BLOOD CHOLESTEROL INCREASED
     Dosage: 20 MG, QD
  2. ALLOPURINOL [Concomitant]
     Indication: GOUT
     Dosage: 300 MG, QD
  3. LEVOXYL [Concomitant]
     Indication: HYPOTHYROIDISM
     Dosage: 50 UG, QD
  4. PROVIGIL [Concomitant]
     Indication: SOMNOLENCE
     Dosage: 200 MG, QD
  5. CELEBREX [Concomitant]
     Indication: ARTHRALGIA
     Dosage: 200 MG, QD
  6. ALTACE [Concomitant]
     Indication: HYPERTENSION
     Dosage: 25 MG, QD
  7. BUSPIRONE HCL [Concomitant]
     Indication: ANXIETY
  8. CHLORHEXIDINE [Concomitant]
     Dosage: UNK, BID
  9. GLUCOSAMINE W/CHONDROITIN [Concomitant]
     Dosage: UNK, TID
  10. ZOMETA [Suspect]
     Indication: MULTIPLE MYELOMA
     Dosage: 4 MG, QMO
     Dates: start: 19980101

REACTIONS (1)
  - OSTEONECROSIS [None]
